FAERS Safety Report 4918274-7 (Version None)
Quarter: 2006Q1

REPORT INFORMATION
  Report Type: 
  Country: None (occurrence: None)
  Receive Date: 20060222
  Receipt Date: 20040524
  Transmission Date: 20060701
  Serious: Yes (Death)
  Sender: FDA-Public Use
  Company Number: FR-RB-730-2004

PATIENT
  Age: 1 Day
  Sex: Male

DRUGS (6)
  1. BUPRENORPHINE HCL [Suspect]
     Indication: DRUG DEPENDENCE
     Route: 060
     Dates: start: 20030228
  2. BUPRENORPHINE HCL [Suspect]
     Route: 060
     Dates: start: 20030526
  3. BUPRENORPHINE HCL [Suspect]
     Route: 060
     Dates: start: 20030624
  4. BUPRENORPHINE HCL [Suspect]
     Route: 060
     Dates: start: 20030822
  5. BUPRENORPHINE HCL [Suspect]
     Route: 060
     Dates: start: 20030916, end: 20031113
  6. BUPRENORPHINE HCL [Suspect]
     Route: 060
     Dates: start: 20031114

REACTIONS (3)
  - DEATH NEONATAL [None]
  - FOETAL DISTRESS SYNDROME [None]
  - PNEUMOTHORAX [None]
